FAERS Safety Report 9164565 (Version 2)
Quarter: 2014Q2

REPORT INFORMATION
  Report Type: Report from Study
  Country: MX (occurrence: MX)
  Receive Date: 20130315
  Receipt Date: 20140604
  Transmission Date: 20141212
  Serious: Yes (Death, Hospitalization, Other)
  Sender: FDA-Public Use
  Company Number: PHHY2013MX025221

PATIENT
  Age: 85 Year
  Sex: Female

DRUGS (1)
  1. EXELON PATCH [Suspect]
     Indication: DEMENTIA ALZHEIMER^S TYPE
     Dosage: 4.6 MG, DAILY
     Route: 062
     Dates: start: 201108

REACTIONS (6)
  - Cough [Fatal]
  - Hypokinesia [Not Recovered/Not Resolved]
  - Apathy [Not Recovered/Not Resolved]
  - Diet refusal [Not Recovered/Not Resolved]
  - Decreased activity [Not Recovered/Not Resolved]
  - Decubitus ulcer [Not Recovered/Not Resolved]
